FAERS Safety Report 5087228-5 (Version None)
Quarter: 2006Q3

REPORT INFORMATION
  Report Type: 
  Country: None (occurrence: None)
  Receive Date: 20060821
  Receipt Date: 20060808
  Transmission Date: 20061208
  Serious: Yes (Hospitalization)
  Sender: FDA-Public Use
  Company Number: CHNY2006JP02344

PATIENT
  Age: 25 Year
  Sex: Male

DRUGS (2)
  1. TAVEGYL (NCH) (CLEMASTINE HYDROGEN FUMARATE) TABLET [Suspect]
     Indication: PRURITUS
     Dosage: 1 MG, ONCE/SINGLE, ORAL
     Route: 048
     Dates: start: 20060807, end: 20060807
  2. VEEN D(CALCIUM CHLORIDE DIHYDRATE, GLUCOSE, POTASSIUM CHLORIDE, SODIUM [Suspect]
     Dosage: INFUSION
     Dates: start: 20060807

REACTIONS (8)
  - FEELING HOT [None]
  - HYPERHIDROSIS [None]
  - MALAISE [None]
  - PAIN [None]
  - PRURITUS [None]
  - PULSE ABSENT [None]
  - SHOCK [None]
  - SUNBURN [None]
